FAERS Safety Report 5352292-2 (Version None)
Quarter: 2007Q2

REPORT INFORMATION
  Report Type: 
  Country: None (occurrence: None)
  Receive Date: 20070611
  Receipt Date: 20070601
  Transmission Date: 20071010
  Serious: Yes (Hospitalization)
  Sender: FDA-Public Use
  Company Number: US-AVENTIS-200714982GDDC

PATIENT
  Age: 54 Year
  Sex: Male

DRUGS (10)
  1. INSULIN GLARGINE [Suspect]
     Route: 058
     Dates: start: 20060628
  2. OPTICLIK (INSULIN INJECTION PEN) [Suspect]
  3. APIDRA [Suspect]
     Route: 058
     Dates: start: 20060926
  4. GLIPIZIDE [Suspect]
     Route: 048
     Dates: start: 19990603
  5. ACTOS [Suspect]
     Route: 048
     Dates: start: 19990603
  6. GEMFIBROZIL [Concomitant]
     Route: 048
     Dates: start: 19990603
  7. LIPITOR [Concomitant]
     Route: 048
     Dates: start: 19990603
  8. ASPIRIN [Concomitant]
     Indication: PROPHYLAXIS
     Route: 048
     Dates: start: 19990603
  9. QUINAPRIL [Concomitant]
     Route: 048
     Dates: start: 19990603
  10. VITAMIN B12 AMINO [Concomitant]
     Route: 048
     Dates: start: 19990603

REACTIONS (1)
  - ASTHENIA [None]
